FAERS Safety Report 12307407 (Version 1)
Quarter: 2016Q2

REPORT INFORMATION
  Report Type: Spontaneous
  Country: US (occurrence: US)
  Receive Date: 20160426
  Receipt Date: 20160426
  Transmission Date: 20160815
  Serious: No
  Sender: FDA-Public Use
  Company Number: US-ALKERMES INC.-ALK-2015-000686

PATIENT
  Age: 53 Year
  Sex: Male

DRUGS (3)
  1. VIVITROL [Suspect]
     Active Substance: NALTREXONE
     Indication: PRODUCT USED FOR UNKNOWN INDICATION
     Dosage: 380 MG, QMO
     Route: 030
     Dates: start: 20150803
  2. CLONIDINE. [Concomitant]
     Active Substance: CLONIDINE
     Indication: DRUG WITHDRAWAL SYNDROME
     Dosage: .20 MG, UNK
     Route: 042
     Dates: end: 2015
  3. SUBOXONE [Concomitant]
     Active Substance: BUPRENORPHINE HYDROCHLORIDE\NALOXONE HYDROCHLORIDE
     Indication: PRODUCT USED FOR UNKNOWN INDICATION
     Dosage: UNK
     Dates: end: 20150714

REACTIONS (9)
  - Hyperhidrosis [Unknown]
  - Headache [Unknown]
  - Essential hypertension [Unknown]
  - Drug withdrawal syndrome [Not Recovered/Not Resolved]
  - Asthenia [Unknown]
  - Malaise [Unknown]
  - Dizziness [Unknown]
  - Nausea [Unknown]
  - Drug screen positive [Recovered/Resolved]

NARRATIVE: CASE EVENT DATE: 201508
